FAERS Safety Report 25917356 (Version 1)
Quarter: 2025Q4

REPORT INFORMATION
  Report Type: Spontaneous
  Country: US (occurrence: US)
  Receive Date: 20251014
  Receipt Date: 20251014
  Transmission Date: 20260117
  Serious: No
  Sender: CHIESI
  Company Number: US-CHIESI-2025CHF06018

PATIENT
  Sex: Female
  Weight: 53.501 kg

DRUGS (1)
  1. FILSUVEZ [Suspect]
     Active Substance: BIRCH TRITERPENES
     Indication: Epidermolysis bullosa
     Dosage: UNK UNK, PRN
     Route: 061
     Dates: start: 20240419

REACTIONS (1)
  - Application site pruritus [Unknown]
